FAERS Safety Report 7527325-5 (Version None)
Quarter: 2011Q2

REPORT INFORMATION
  Report Type: 
  Country: None (occurrence: None)
  Receive Date: 20110607
  Receipt Date: 20081110
  Transmission Date: 20111010
  Serious: Yes (Hospitalization, Other)
  Sender: FDA-Public Use
  Company Number: US-BAYER-200838355NA

PATIENT
  Age: 40 Year
  Sex: Male
  Weight: 88 kg

DRUGS (5)
  1. LASIX [Concomitant]
     Dosage: 40MG
     Route: 042
     Dates: start: 20061018, end: 20061018
  2. TRASYLOL [Suspect]
     Indication: AORTIC VALVE REPAIR
     Dosage: LOADING DOSE OF 100 ML BOLUS THEN 50 ML HOUR
     Route: 042
     Dates: start: 20061018, end: 20061018
  3. PROTAMINE SULFATE [Concomitant]
     Dosage: 250MG
     Route: 042
     Dates: start: 20061018, end: 20061018
  4. INSULIN [Concomitant]
     Dosage: INSULIN
     Route: 042
     Dates: start: 20061018, end: 20061018
  5. HEPARIN [Concomitant]
     Dosage: 40,000UNITS
     Route: 042
     Dates: start: 20061018, end: 20061018

REACTIONS (5)
  - INJURY [None]
  - RENAL FAILURE ACUTE [None]
  - UNEVALUABLE EVENT [None]
  - RENAL FAILURE [None]
  - PAIN [None]
